FAERS Safety Report 25138192 (Version 1)
Quarter: 2025Q1

REPORT INFORMATION
  Report Type: Other
  Country: CZ (occurrence: CZ)
  Receive Date: 20250330
  Receipt Date: 20250330
  Transmission Date: 20250408
  Serious: Yes (Hospitalization, Other)
  Sender: Kanchan Healthcare
  Company Number: CZ-Kanchan Healthcare INC-2173893

PATIENT
  Age: 57 Year
  Sex: Male

DRUGS (3)
  1. DEXAMETHASONE [Suspect]
     Active Substance: DEXAMETHASONE
     Indication: COVID-19 pneumonia
  2. Aminopenicillin [Concomitant]
  3. CLARITHROMYCIN [Concomitant]
     Active Substance: CLARITHROMYCIN

REACTIONS (2)
  - Acute psychosis [Recovered/Resolved]
  - Product use in unapproved indication [Unknown]
